FAERS Safety Report 14634579 (Version 1)
Quarter: 2018Q1

REPORT INFORMATION
  Report Type: Spontaneous
  Country: FR (occurrence: FR)
  Receive Date: 20180314
  Receipt Date: 20180314
  Transmission Date: 20180509
  Serious: Yes (Other)
  Sender: FDA-Public Use
  Company Number: FR-MERCK KGAA-2043681

PATIENT
  Age: 71 Year
  Sex: Female

DRUGS (1)
  1. NOVOTHYROX [Suspect]
     Active Substance: LEVOTHYROXINE SODIUM
     Indication: PRODUCT USED FOR UNKNOWN INDICATION
     Dates: start: 2017

REACTIONS (19)
  - Myalgia [None]
  - Tongue discomfort [None]
  - Depressed mood [None]
  - Weight increased [None]
  - Oral discomfort [None]
  - Dyspepsia [None]
  - Amnesia [None]
  - Affective disorder [None]
  - Throat irritation [None]
  - General physical health deterioration [None]
  - Fatigue [None]
  - Loss of personal independence in daily activities [None]
  - Pain [None]
  - Alopecia [None]
  - Insomnia [None]
  - Blood thyroid stimulating hormone abnormal [None]
  - Dizziness [None]
  - Skin burning sensation [None]
  - Thyroxine free increased [None]

NARRATIVE: CASE EVENT DATE: 201705
